FAERS Safety Report 18710289 (Version 3)
Quarter: 2021Q1

REPORT INFORMATION
  Report Type: Spontaneous
  Country: US (occurrence: US)
  Receive Date: 20210107
  Receipt Date: 20210305
  Transmission Date: 20210419
  Serious: Yes (Death, Other)
  Sender: FDA-Public Use
  Company Number: US-BIOVITRUM-2021US0090

PATIENT
  Sex: Female
  Weight: 5 kg

DRUGS (12)
  1. SYNAGIS [Suspect]
     Active Substance: PALIVIZUMAB
     Indication: VENTRICULAR SEPTAL DEFECT
  2. SYNAGIS [Suspect]
     Active Substance: PALIVIZUMAB
     Indication: CONGENITAL PULMONARY VALVE ATRESIA
  3. FUROSEMIDE. [Concomitant]
     Active Substance: FUROSEMIDE
  4. SYNAGIS [Suspect]
     Active Substance: PALIVIZUMAB
     Indication: PREMATURE BABY
     Route: 030
     Dates: start: 20201224
  5. SYNAGIS [Suspect]
     Active Substance: PALIVIZUMAB
     Indication: LOW BIRTH WEIGHT BABY
  6. SYNAGIS [Suspect]
     Active Substance: PALIVIZUMAB
     Indication: PULMONARY HYPERTENSION
  7. TRACLEER [Concomitant]
     Active Substance: BOSENTAN
  8. SYNAGIS [Suspect]
     Active Substance: PALIVIZUMAB
     Indication: PATENT DUCTUS ARTERIOSUS
  9. POTASSIUM CHLORIDE. [Concomitant]
     Active Substance: POTASSIUM CHLORIDE
  10. SYNAGIS [Suspect]
     Active Substance: PALIVIZUMAB
     Indication: NEONATAL RESPIRATORY DISTRESS SYNDROME
  11. REVATIO [Concomitant]
     Active Substance: SILDENAFIL CITRATE
  12. SYNAGIS [Suspect]
     Active Substance: PALIVIZUMAB
     Indication: TRISOMY 18

REACTIONS (1)
  - Death [Fatal]
